FAERS Safety Report 9263101 (Version 1)
Quarter: 2013Q2

REPORT INFORMATION
  Report Type: Spontaneous
  Country: US (occurrence: None)
  Receive Date: 20130426
  Receipt Date: 20130426
  Transmission Date: 20140414
  Serious: Yes (Disabling)
  Sender: FDA-Public Use
  Company Number: None

PATIENT
  Age: 47 Year
  Sex: Male
  Weight: 81.65 kg

DRUGS (6)
  1. RETINOL [Suspect]
     Indication: SKIN DISORDER
     Dosage: ONCE NIGHTLY,
     Route: 061
     Dates: start: 20121125, end: 20121127
  2. RETINOL [Suspect]
     Indication: DRY SKIN
     Dosage: ONCE NIGHTLY,
     Route: 061
     Dates: start: 20121125, end: 20121127
  3. RETINOL [Suspect]
     Indication: PROPHYLAXIS
     Dosage: ONCE NIGHTLY,
     Route: 061
     Dates: start: 20121125, end: 20121127
  4. RETINOL [Suspect]
     Indication: SKIN DISORDER
     Dosage: ONCE MORNING
     Route: 061
     Dates: start: 20121125, end: 20121127
  5. RETINOL [Suspect]
     Indication: DRY SKIN
     Dosage: ONCE MORNING
     Route: 061
     Dates: start: 20121125, end: 20121127
  6. RETINOL [Suspect]
     Indication: PROPHYLAXIS
     Dosage: ONCE MORNING
     Route: 061
     Dates: start: 20121125, end: 20121127

REACTIONS (6)
  - Pain [None]
  - Paraesthesia [None]
  - Skin disorder [None]
  - Swelling face [None]
  - Chemical injury [None]
  - Product label issue [None]
